FAERS Safety Report 14021776 (Version 1)
Quarter: 2017Q3

REPORT INFORMATION
  Report Type: Report from Study
  Country: US (occurrence: US)
  Receive Date: 20170928
  Receipt Date: 20170928
  Transmission Date: 20171128
  Serious: No
  Sender: FDA-Public Use
  Company Number: US-CLOVIS ONCOLOGY-CLO-2017-000834

PATIENT
  Age: 61 Year
  Sex: Female

DRUGS (2)
  1. RUBRACA [Suspect]
     Active Substance: RUCAPARIB CAMSYLATE
     Indication: OVARIAN CANCER
     Dosage: 600 MG, BID
     Route: 048
     Dates: start: 20170729, end: 20170819
  2. RUBRACA [Suspect]
     Active Substance: RUCAPARIB CAMSYLATE
     Dosage: 300 MG, BID
     Route: 048
     Dates: start: 20170820

REACTIONS (10)
  - Loss of personal independence in daily activities [Unknown]
  - Asthenia [Recovering/Resolving]
  - Decreased appetite [Unknown]
  - Movement disorder [Not Recovered/Not Resolved]
  - Underdose [Unknown]
  - Balance disorder [Unknown]
  - Fatigue [Not Recovered/Not Resolved]
  - Vomiting [Recovering/Resolving]
  - Dizziness [Unknown]
  - Nausea [Unknown]

NARRATIVE: CASE EVENT DATE: 2017
